FAERS Safety Report 9058409 (Version 3)
Quarter: 2013Q2

REPORT INFORMATION
  Report Type: Spontaneous
  Country: US (occurrence: US)
  Receive Date: 20130211
  Receipt Date: 20130415
  Transmission Date: 20140414
  Serious: Yes (Hospitalization)
  Sender: FDA-Public Use
  Company Number: US-JNJFOC-20130200245

PATIENT
  Age: 66 Year
  Sex: Female
  Weight: 79.83 kg

DRUGS (10)
  1. STELARA [Suspect]
     Indication: ERYTHRODERMIC PSORIASIS
     Route: 058
     Dates: start: 20130111, end: 20130111
  2. STELARA [Suspect]
     Indication: ERYTHRODERMIC PSORIASIS
     Route: 058
     Dates: start: 20121019, end: 20121019
  3. STELARA [Suspect]
     Indication: ERYTHRODERMIC PSORIASIS
     Dosage: RECENTLY RECEIVED AN INJECTION WITH AN OVERALL OF 3 INJECTIONS
     Route: 058
     Dates: start: 20120921, end: 20120921
  4. DYAZIDE [Concomitant]
     Indication: HYPERTENSION
     Route: 048
  5. POTASSIUM [Concomitant]
     Indication: HYPERTENSION
     Route: 048
  6. ZYRTEC [Concomitant]
     Indication: PRURITUS
     Route: 048
  7. SYNTHROID [Concomitant]
     Indication: HYPOTHYROIDISM
     Route: 048
  8. PROBIOTIC [Concomitant]
     Indication: PRODUCT USED FOR UNKNOWN INDICATION
     Route: 065
  9. PRISTIQ [Concomitant]
     Indication: PRODUCT USED FOR UNKNOWN INDICATION
     Route: 048
  10. CYCLOSPORINE [Concomitant]
     Indication: PRODUCT USED FOR UNKNOWN INDICATION
     Route: 065
     Dates: start: 20130111

REACTIONS (2)
  - Cardiac failure congestive [Recovered/Resolved]
  - Psoriasis [Unknown]
